FAERS Safety Report 8833849 (Version 1)
Quarter: 2012Q4

REPORT INFORMATION
  Report Type: 
  Country: DO (occurrence: DO)
  Receive Date: 20121011
  Receipt Date: 20121011
  Transmission Date: 20130627
  Serious: Yes (Other)
  Sender: FDA-Public Use
  Company Number: DO-AMGEN-DOMSP2012063792

PATIENT
  Sex: Female

DRUGS (1)
  1. ENBREL [Suspect]
     Indication: PRODUCT USED FOR UNKNOWN INDICATION
     Dosage: UNK

REACTIONS (2)
  - Candidiasis [Unknown]
  - Herpes virus infection [Unknown]
